FAERS Safety Report 6047066-3 (Version None)
Quarter: 2009Q1

REPORT INFORMATION
  Report Type: 
  Country: None (occurrence: None)
  Receive Date: 20090122
  Receipt Date: 20090115
  Transmission Date: 20090719
  Serious: Yes (Death)
  Sender: FDA-Public Use
  Company Number: US-ABBOTT-09P-163-0497155-00

PATIENT
  Sex: Male

DRUGS (7)
  1. DEPAKOTE ER [Suspect]
     Indication: SCHIZOPHRENIA, PARANOID TYPE
     Route: 048
     Dates: start: 20080731
  2. HEROIN [Suspect]
     Indication: DRUG USE FOR UNKNOWN INDICATION
  3. TRAZODONE HCL [Concomitant]
     Indication: DEPRESSION
  4. RISPERDAL [Concomitant]
     Indication: SCHIZOPHRENIA, PARANOID TYPE
  5. BENADRYL [Concomitant]
     Indication: DRUG USE FOR UNKNOWN INDICATION
  6. ZOLOFT [Concomitant]
     Indication: DEPRESSION
  7. CLONAZEPAM [Concomitant]
     Indication: ANXIETY

REACTIONS (1)
  - OVERDOSE [None]
